FAERS Safety Report 5263725-4 (Version None)
Quarter: 2007Q1

REPORT INFORMATION
  Report Type: 
  Country: None (occurrence: None)
  Receive Date: 20061213
  Receipt Date: 20040623
  Transmission Date: 20070707
  Serious: No
  Sender: FDA-Public Use
  Company Number: 2004UW13023

PATIENT
  Age: 81 Year
  Sex: Female
  Weight: 56.6996 kg

DRUGS (6)
  1. IRESSA [Suspect]
     Indication: LUNG CANCER METASTATIC
     Dosage: 250 MG PO
     Route: 048
     Dates: start: 20031201, end: 20040601
  2. FOSAMAX [Concomitant]
  3. SYNTHROID [Concomitant]
  4. PROTONIX [Concomitant]
  5. COUMADIN [Concomitant]
  6. AMBIEN [Concomitant]

REACTIONS (2)
  - DISEASE PROGRESSION [None]
  - DRUG INEFFECTIVE [None]
